FAERS Safety Report 5901753-3 (Version None)
Quarter: 2008Q3

REPORT INFORMATION
  Report Type: 
  Country: None (occurrence: None)
  Receive Date: 20080925
  Receipt Date: 20080911
  Transmission Date: 20090109
  Serious: Yes (Hospitalization)
  Sender: FDA-Public Use
  Company Number: ENT 2008-0143

PATIENT
  Age: 58 Year
  Sex: Male

DRUGS (9)
  1. COMTAN [Suspect]
     Indication: PARKINSON'S DISEASE
     Dosage: 700 MG, ORAL
     Route: 048
     Dates: start: 20080725, end: 20080815
  2. CARBIDOPA AND LEVODOPA [Concomitant]
  3. SYMMETREL [Concomitant]
  4. PRAMIPEXOLE DIHYDROCHLORIDE [Concomitant]
  5. FP [Concomitant]
  6. MAGLAX [Concomitant]
  7. GASMOTIN [Concomitant]
  8. LORAZEPAM [Concomitant]
  9. SEVEN-EP 3DF [Concomitant]

REACTIONS (5)
  - FEELING ABNORMAL [None]
  - HEAT ILLNESS [None]
  - HYPONATRAEMIA [None]
  - NEUROLEPTIC MALIGNANT SYNDROME [None]
  - TEMPERATURE REGULATION DISORDER [None]
